FAERS Safety Report 15884547 (Version 1)
Quarter: 2019Q1

REPORT INFORMATION
  Report Type: Report from Study
  Country: US (occurrence: US)
  Receive Date: 20190129
  Receipt Date: 20190129
  Transmission Date: 20190417
  Serious: Yes (Hospitalization)
  Sender: FDA-Public Use
  Company Number: US-ROCHE-2252562

PATIENT
  Age: 76 Year
  Sex: Female
  Weight: 98.32 kg

DRUGS (17)
  1. CIPRO [Concomitant]
     Active Substance: CIPROFLOXACIN HYDROCHLORIDE
     Route: 065
     Dates: start: 20181205
  2. TYLENOL [Concomitant]
     Active Substance: ACETAMINOPHEN
  3. ENOXAPARIN [Concomitant]
     Active Substance: ENOXAPARIN
     Route: 065
     Dates: start: 20181114
  4. NYSTATIN. [Concomitant]
     Active Substance: NYSTATIN
     Route: 065
     Dates: start: 20181205
  5. OMEPRAZOLE. [Concomitant]
     Active Substance: OMEPRAZOLE
     Route: 065
     Dates: start: 20181114
  6. PIROXICAM. [Concomitant]
     Active Substance: PIROXICAM
     Route: 065
     Dates: start: 20181114
  7. NPH INSULIN [Concomitant]
     Active Substance: INSULIN BEEF
     Route: 065
     Dates: start: 2010
  8. ATEZOLIZUMAB. [Suspect]
     Active Substance: ATEZOLIZUMAB
     Indication: CHOLANGIOCARCINOMA
     Dosage: DATE OF MOST RECENT DOSE OF ATEZOLIZUMAB PRIOR TO EVENT : 19/NOV/2018
     Route: 042
     Dates: start: 20181119
  9. PEGPH20 [Suspect]
     Active Substance: PEGVORHYALURONIDASE ALFA
     Indication: CHOLANGIOCARCINOMA
     Dosage: DATE OF MOST RECENT DOSE OF PEGPH20 PRIOR TO  EVENT : 26/NOV/2018
     Route: 042
     Dates: start: 20181119
  10. CISPLATIN. [Suspect]
     Active Substance: CISPLATIN
     Indication: CHOLANGIOCARCINOMA
     Dosage: DATE OF MOST RECENT DOSE OF CISPLATIN PRIOR TO EVENT : 27/NOV/2018
     Route: 042
     Dates: start: 20181120
  11. PERCOCET [Concomitant]
     Active Substance: ACETAMINOPHEN\OXYCODONE HYDROCHLORIDE
     Route: 065
     Dates: start: 201810
  12. ZOFRAN [Concomitant]
     Active Substance: ONDANSETRON HYDROCHLORIDE
     Route: 065
     Dates: start: 201810
  13. MIRTAZAPINE. [Concomitant]
     Active Substance: MIRTAZAPINE
     Route: 065
     Dates: start: 20181022
  14. LOPRESSOR [Concomitant]
     Active Substance: METOPROLOL TARTRATE
  15. LOTENSIN (UNITED STATES) [Concomitant]
     Route: 065
     Dates: start: 2008
  16. GEMCITABINE [Suspect]
     Active Substance: GEMCITABINE\GEMCITABINE HYDROCHLORIDE
     Indication: CHOLANGIOCARCINOMA
     Dosage: DATE OF MOST RECENT DOSE OF GEMCITABINE PRIOR TO EVENT : 27/NOV/2018
     Route: 042
     Dates: start: 20181120
  17. ASPIRIN. [Concomitant]
     Active Substance: ASPIRIN

REACTIONS (3)
  - Neutropenia [Unknown]
  - Anaemia [Unknown]
  - Cellulitis [Unknown]
